FAERS Safety Report 21448028 (Version 1)
Quarter: 2022Q4

REPORT INFORMATION
  Report Type: Spontaneous
  Country: US (occurrence: US)
  Receive Date: 20221012
  Receipt Date: 20221012
  Transmission Date: 20230113
  Serious: Yes (Hospitalization)
  Sender: FDA-Public Use
  Company Number: US-BRISTOL-MYERS SQUIBB COMPANY-2022-117551

PATIENT
  Age: 72 Year
  Sex: Male
  Weight: 92.53 kg

DRUGS (2)
  1. POMALYST [Suspect]
     Active Substance: POMALIDOMIDE
     Indication: Plasma cell myeloma
     Dosage: DOSE : 4 MG;    FREQ : ONCE DAILY X TWENTY-ONE DAYS (THREE WEEKS ON, ONE WEEK OFF)
     Route: 048
     Dates: start: 2022, end: 202208
  2. POMALYST [Suspect]
     Active Substance: POMALIDOMIDE
     Dosage: 3 MG;     FREQ : ONCE DAILY X TWENTY-ONE DAYS (THREE WEEKS ON, ONE WEEK OFF)
     Route: 048
     Dates: start: 2022, end: 202208

REACTIONS (4)
  - Dyspnoea [Unknown]
  - Cough [Unknown]
  - Pyrexia [Unknown]
  - Lung disorder [Unknown]
